FAERS Safety Report 4704491-8 (Version None)
Quarter: 2005Q2

REPORT INFORMATION
  Report Type: 
  Country: None (occurrence: None)
  Receive Date: 20050628
  Receipt Date: 20050614
  Transmission Date: 20051028
  Serious: Yes (Other)
  Sender: FDA-Public Use
  Company Number: FR_050506490

PATIENT
  Age: 20 Year
  Sex: Male
  Weight: 70 kg

DRUGS (2)
  1. ZYPREXA [Suspect]
     Indication: PSYCHOTIC DISORDER
     Dosage: 15 MG/1 DAY
     Dates: start: 20050401, end: 20050515
  2. PRAZEPAM [Concomitant]

REACTIONS (1)
  - HEPATOCELLULAR DAMAGE [None]
